FAERS Safety Report 12853914 (Version 1)
Quarter: 2016Q4

REPORT INFORMATION
  Report Type: Spontaneous
  Country: GB (occurrence: GB)
  Receive Date: 20161017
  Receipt Date: 20161017
  Transmission Date: 20170207
  Serious: Yes (Other)
  Sender: FDA-Public Use
  Company Number: US-BRAINTREE LABORATORIES-160736

PATIENT
  Age: 62 Year
  Sex: Male

DRUGS (1)
  1. IZINOVA [Suspect]
     Active Substance: MAGNESIUM SULFATE\POTASSIUM SULFATE\SODIUM SULFATE
     Route: 048
     Dates: start: 20160221, end: 20160221

REACTIONS (2)
  - Localised oedema [None]
  - Temporomandibular joint syndrome [None]

NARRATIVE: CASE EVENT DATE: 20160221
